FAERS Safety Report 8304788-9 (Version None)
Quarter: 2012Q2

REPORT INFORMATION
  Report Type: 
  Country: None (occurrence: None)
  Receive Date: 20120423
  Receipt Date: 20120417
  Transmission Date: 20120825
  Serious: Yes (Other)
  Sender: FDA-Public Use
  Company Number: US-BAYER-2012-038103

PATIENT
  Age: 57 Year
  Sex: Female

DRUGS (3)
  1. HORMONES NOS [Concomitant]
  2. INTERFERON BETA-1B [Suspect]
     Indication: MULTIPLE SCLEROSIS
     Dosage: 2 MIU, UNK
     Route: 058
     Dates: start: 20120411
  3. UNCODEABLE ^UNCLASSIFIABLE^ [Concomitant]
     Indication: PREMEDICATION

REACTIONS (6)
  - FATIGUE [None]
  - PAIN [None]
  - FEELING HOT [None]
  - MALAISE [None]
  - VAGINAL HAEMORRHAGE [None]
  - NIGHT SWEATS [None]
